FAERS Safety Report 6041877-6 (Version None)
Quarter: 2009Q1

REPORT INFORMATION
  Report Type: 
  Country: None (occurrence: None)
  Receive Date: 20090116
  Receipt Date: 20090113
  Transmission Date: 20090719
  Serious: Yes (Death)
  Sender: FDA-Public Use
  Company Number: US-BRISTOL-MYERS SQUIBB COMPANY-14470371

PATIENT
  Age: 15 Year
  Sex: Male

DRUGS (3)
  1. WARFARIN SODIUM [Suspect]
     Route: 048
  2. HYDROXYCHLOROQUINE [Suspect]
     Route: 048
  3. DILTIAZEM HCL [Suspect]

REACTIONS (1)
  - COMPLETED SUICIDE [None]
